FAERS Safety Report 6959561-0 (Version None)
Quarter: 2010Q3

REPORT INFORMATION
  Report Type: 
  Country: None (occurrence: None)
  Receive Date: 20100827
  Receipt Date: 20100825
  Transmission Date: 20110219
  Serious: Yes (Other)
  Sender: FDA-Public Use
  Company Number: 2010AP001750

PATIENT
  Age: 46 Year
  Sex: Female

DRUGS (4)
  1. SERTRALINE HYDROCHLORIDE [Suspect]
     Indication: DEPRESSION
     Dosage: 50 MG; PO, 100 MG PO;
     Route: 048
     Dates: start: 20100305, end: 20100402
  2. SERTRALINE HYDROCHLORIDE [Suspect]
     Indication: DEPRESSION
     Dosage: 50 MG; PO, 100 MG PO;
     Route: 048
     Dates: start: 20100305, end: 20100804
  3. SERTRALINE HYDROCHLORIDE [Suspect]
     Indication: DEPRESSION
     Dosage: 50 MG; PO, 100 MG PO;
     Route: 048
     Dates: start: 20100317, end: 20100804
  4. CITALOPRAM HYDROBROMIDE [Concomitant]

REACTIONS (1)
  - COLITIS COLLAGENOUS [None]
